FAERS Safety Report 7278351-5 (Version None)
Quarter: 2011Q1

REPORT INFORMATION
  Report Type: 
  Country: None (occurrence: None)
  Receive Date: 20110207
  Receipt Date: 20110124
  Transmission Date: 20110831
  Serious: Yes (Hospitalization)
  Sender: FDA-Public Use
  Company Number: PL-RANBAXY-2010RR-40832

PATIENT
  Age: 26 Year
  Sex: Male

DRUGS (6)
  1. XYNTABALIN [Suspect]
     Dosage: UNK
     Route: 030
  2. CEFOTAXIME SODIUM [Suspect]
     Indication: UPPER RESPIRATORY TRACT INFECTION
  3. SULFASALAZINE [Suspect]
     Indication: COLITIS ULCERATIVE
  4. FUSAFUNGINE [Suspect]
     Indication: UPPER RESPIRATORY TRACT INFECTION
     Route: 061
  5. DOXYCYCLINE [Suspect]
     Indication: UPPER RESPIRATORY TRACT INFECTION
  6. CEFACLOR [Suspect]
     Indication: UPPER RESPIRATORY TRACT INFECTION

REACTIONS (8)
  - EYELID FUNCTION DISORDER [None]
  - TOXIC EPIDERMAL NECROLYSIS [None]
  - TRICHOSPORON INFECTION [None]
  - RESPIRATORY FAILURE [None]
  - SEPSIS [None]
  - SCAR [None]
  - BLEPHAROSPASM [None]
  - PAIN [None]
